FAERS Safety Report 8800630 (Version 2)
Quarter: 2015Q1

REPORT INFORMATION
  Report Type: Report from Study
  Country: US (occurrence: US)
  Receive Date: 20120921
  Receipt Date: 20150309
  Transmission Date: 20150721
  Serious: Yes (Death)
  Sender: FDA-Public Use
  Company Number: US-ROCHE-1104232

PATIENT
  Sex: Female
  Weight: 55.84 kg

DRUGS (23)
  1. TARCEVA [Suspect]
     Active Substance: ERLOTINIB HYDROCHLORIDE
     Dosage: EVERY OTHER DAY
     Route: 048
  2. ASPIRIN. [Concomitant]
     Active Substance: ASPIRIN
  3. AVASTIN [Suspect]
     Active Substance: BEVACIZUMAB
     Indication: LUNG NEOPLASM MALIGNANT
     Route: 042
     Dates: start: 20100405
  4. VICODIN [Concomitant]
     Active Substance: ACETAMINOPHEN\HYDROCODONE BITARTRATE
  5. FOLIC ACID. [Concomitant]
     Active Substance: FOLIC ACID
  6. FAMOTIDINE. [Concomitant]
     Active Substance: FAMOTIDINE
     Route: 042
  7. AVASTIN [Suspect]
     Active Substance: BEVACIZUMAB
     Dosage: 790 MG (AT 15MG/KG) IV DAILY FOR 1 DAY
     Route: 042
  8. AVASTIN [Suspect]
     Active Substance: BEVACIZUMAB
     Route: 042
  9. MAGNESIUM SULFATE. [Concomitant]
     Active Substance: MAGNESIUM SULFATE
     Route: 042
  10. DEXTROSE. [Concomitant]
     Active Substance: DEXTROSE
     Route: 042
  11. DEXAMETHASONE SODIUM PHOSPHATE. [Concomitant]
     Active Substance: DEXAMETHASONE SODIUM PHOSPHATE
     Route: 042
  12. ALIMTA [Concomitant]
     Active Substance: PEMETREXED DISODIUM
  13. POTASSIUM CHLORIDE. [Concomitant]
     Active Substance: POTASSIUM CHLORIDE
     Route: 065
  14. ONDANSETRON [Concomitant]
     Active Substance: ONDANSETRON
     Route: 042
  15. SODIUM CHLORIDE. [Concomitant]
     Active Substance: SODIUM CHLORIDE
     Route: 042
  16. AVASTIN [Suspect]
     Active Substance: BEVACIZUMAB
     Dosage: 724 MG (AT 15MG/KG) IV DAILY FOR 1 DAY
     Route: 042
  17. DOLASETRON MESYLATE [Concomitant]
     Active Substance: DOLASETRON MESYLATE
     Route: 042
  18. DEXTROSE. [Concomitant]
     Active Substance: DEXTROSE
     Dosage: 1000 ML (OF 5-0.9%) IV DAILY OVER 2 HOURS FOR 1 DAY
     Route: 042
  19. HYDROCHLOROTHIAZIDE. [Concomitant]
     Active Substance: HYDROCHLOROTHIAZIDE
     Route: 065
  20. SODIUM CHLORIDE. [Concomitant]
     Active Substance: SODIUM CHLORIDE
     Route: 042
  21. AVASTIN [Suspect]
     Active Substance: BEVACIZUMAB
     Route: 042
  22. TARCEVA [Suspect]
     Active Substance: ERLOTINIB HYDROCHLORIDE
     Indication: LUNG NEOPLASM MALIGNANT
     Route: 048
  23. PALONOSETRON HYDROCHLORIDE [Concomitant]
     Active Substance: PALONOSETRON HYDROCHLORIDE
     Dosage: 0.25 MG IV PUSH OVER 30 SECONDS FOR 1 DAY
     Route: 042

REACTIONS (13)
  - Death [Fatal]
  - Decreased appetite [Unknown]
  - Hypokalaemia [Recovered/Resolved]
  - Diarrhoea [Unknown]
  - Mucosal dryness [Unknown]
  - Drug intolerance [Unknown]
  - Disease progression [Unknown]
  - Anaemia [Recovered/Resolved]
  - Abdominal discomfort [Unknown]
  - Hypertension [Recovered/Resolved]
  - Dehydration [Unknown]
  - Fatigue [Unknown]
  - Dermatitis acneiform [Unknown]
